FAERS Safety Report 16021449 (Version 1)
Quarter: 2019Q1

REPORT INFORMATION
  Report Type: Spontaneous
  Country: US (occurrence: US)
  Receive Date: 20190205
  Receipt Date: 20190205
  Transmission Date: 20190418
  Serious: No
  Sender: FDA-Public Use
  Company Number: None

PATIENT

DRUGS (1)
  1. AMOXICILLIN AND CLAVULANATE POTASSIUM [Suspect]
     Active Substance: AMOXICILLIN\CLAVULANATE POTASSIUM

REACTIONS (8)
  - Documented hypersensitivity to administered product [None]
  - Pruritus [None]
  - Temperature intolerance [None]
  - Skin exfoliation [None]
  - Photophobia [None]
  - Rash [None]
  - Pyrexia [None]
  - Erythema [None]

NARRATIVE: CASE EVENT DATE: 2018
